FAERS Safety Report 17136418 (Version 1)
Quarter: 2019Q4

REPORT INFORMATION
  Report Type: Spontaneous
  Country: JP (occurrence: JP)
  Receive Date: 20191210
  Receipt Date: 20191210
  Transmission Date: 20200122
  Serious: Yes (Life-Threatening, Other)
  Sender: FDA-Public Use
  Company Number: JP-ASTRAZENECA-2019SF45543

PATIENT
  Age: 18308 Day
  Sex: Female
  Weight: 45 kg

DRUGS (4)
  1. DOMPERIDONE [Concomitant]
     Active Substance: DOMPERIDONE
     Indication: NAUSEA
     Dosage: 10.0MG AS REQUIRED
     Route: 048
     Dates: start: 20190716, end: 20190730
  2. DOMPERIDONE [Concomitant]
     Active Substance: DOMPERIDONE
     Indication: NAUSEA
     Dosage: 10.0MG AS REQUIRED
     Route: 048
     Dates: start: 20190716, end: 20190730
  3. LYNPARZA [Suspect]
     Active Substance: OLAPARIB
     Indication: OVARIAN CANCER
     Route: 048
     Dates: start: 20190716, end: 20190903
  4. LYNPARZA [Suspect]
     Active Substance: OLAPARIB
     Indication: OVARIAN CANCER
     Route: 048
     Dates: start: 20191015, end: 20191126

REACTIONS (3)
  - Bone marrow failure [Unknown]
  - Anaemia [Not Recovered/Not Resolved]
  - Platelet count decreased [Recovered/Resolved]

NARRATIVE: CASE EVENT DATE: 20190813
